FAERS Safety Report 4901143-6 (Version None)
Quarter: 2006Q1

REPORT INFORMATION
  Report Type: 
  Country: None (occurrence: None)
  Receive Date: 20060201
  Receipt Date: 20060117
  Transmission Date: 20060701
  Serious: Yes (Hospitalization)
  Sender: FDA-Public Use
  Company Number: 1-13540150

PATIENT
  Age: 68 Year
  Sex: Male

DRUGS (10)
  1. ATENOLOL [Suspect]
     Indication: CORONARY ARTERY DISEASE
     Dosage: 25 MG DAILY, ORAL
     Route: 048
  2. SPIRONOLACTONE [Suspect]
     Indication: ASCITES
     Dosage: 100 MG, DAILY, ORAL
     Route: 048
  3. PHOSLO  CAPSULE [Concomitant]
  4. METOCLOPRAMIDE [Concomitant]
  5. LIPITOR [Concomitant]
  6. LORATADINE [Concomitant]
  7. NASONEX [Concomitant]
  8. ASPIRIN [Concomitant]
  9. TRIAMCINOLONE [Concomitant]
  10. NORTRIPTYLINE HCL [Concomitant]

REACTIONS (4)
  - DYSPNOEA [None]
  - MALABSORPTION [None]
  - NUTRITIONAL CONDITION ABNORMAL [None]
  - PROTEIN-LOSING GASTROENTEROPATHY [None]
